FAERS Safety Report 24297329 (Version 1)
Quarter: 2024Q3

REPORT INFORMATION
  Report Type: Spontaneous
  Country: PL (occurrence: PL)
  Receive Date: 20240909
  Receipt Date: 20240909
  Transmission Date: 20241017
  Serious: Yes (Hospitalization)
  Sender: MYLAN
  Company Number: PL-MYLANLABS-2024M1081061

PATIENT
  Age: 11 Year
  Sex: Male

DRUGS (15)
  1. METOPROLOL [Suspect]
     Active Substance: METOPROLOL
     Indication: Multisystem inflammatory syndrome in children
     Dosage: UNK
     Route: 065
  2. SPIRONOLACTONE [Concomitant]
     Active Substance: SPIRONOLACTONE
     Indication: Multisystem inflammatory syndrome in children
     Dosage: UNK
     Route: 065
  3. Immunoglobulin [Concomitant]
     Indication: Multisystem inflammatory syndrome in children
     Dosage: INFUSION
     Route: 065
  4. ALBUMIN HUMAN [Concomitant]
     Active Substance: ALBUMIN HUMAN
     Indication: Multisystem inflammatory syndrome in children
     Dosage: UNK
     Route: 065
  5. HEPARIN [Concomitant]
     Active Substance: HEPARIN SODIUM
     Indication: Multisystem inflammatory syndrome in children
     Dosage: UNK
     Route: 065
  6. MEROPENEM [Concomitant]
     Active Substance: MEROPENEM
     Indication: Multisystem inflammatory syndrome in children
     Dosage: UNK
     Route: 065
  7. ETOPOSIDE [Concomitant]
     Active Substance: ETOPOSIDE
     Indication: Haemophagocytic lymphohistiocytosis
     Dosage: UNK
     Route: 065
  8. METHYLPREDNISOLONE [Concomitant]
     Active Substance: METHYLPREDNISOLONE
     Indication: Multisystem inflammatory syndrome in children
     Dosage: UNK
     Route: 065
  9. ASPIRIN [Concomitant]
     Active Substance: ASPIRIN
     Indication: Multisystem inflammatory syndrome in children
     Dosage: UNK
     Route: 065
  10. PIPERACILLIN AND TAZOBACTAM [Concomitant]
     Active Substance: PIPERACILLIN SODIUM\TAZOBACTAM SODIUM
     Indication: Multisystem inflammatory syndrome in children
     Dosage: UNK
     Route: 065
  11. FLUCONAZOLE [Concomitant]
     Active Substance: FLUCONAZOLE
     Indication: Multisystem inflammatory syndrome in children
     Dosage: UNK
     Route: 065
  12. NADROPARIN CALCIUM [Concomitant]
     Active Substance: NADROPARIN CALCIUM
     Indication: Multisystem inflammatory syndrome in children
     Dosage: UNK
     Route: 065
  13. ANAKINRA [Concomitant]
     Active Substance: ANAKINRA
     Indication: Multisystem inflammatory syndrome in children
     Dosage: UNK
     Route: 065
  14. DEXAMETHASONE [Concomitant]
     Active Substance: DEXAMETHASONE
     Indication: Haemophagocytic lymphohistiocytosis
     Dosage: UNK
     Route: 065
  15. CYCLOSPORINE [Concomitant]
     Active Substance: CYCLOSPORINE
     Indication: Haemophagocytic lymphohistiocytosis
     Dosage: UNK
     Route: 065

REACTIONS (2)
  - Drug ineffective for unapproved indication [Unknown]
  - Off label use [Unknown]
